FAERS Safety Report 9272699 (Version 1)
Quarter: 2013Q2

REPORT INFORMATION
  Report Type: Spontaneous
  Country: US (occurrence: US)
  Receive Date: 20130506
  Receipt Date: 20130506
  Transmission Date: 20140414
  Serious: No
  Sender: FDA-Public Use
  Company Number: US-ASTRAZENECA-2012SE28286

PATIENT
  Sex: Male

DRUGS (2)
  1. PRILOSEC OTC [Suspect]
     Route: 048
     Dates: end: 20120428
  2. AMBIEN [Interacting]
     Dosage: UNKNOWN
     Route: 065

REACTIONS (3)
  - Drug interaction [Unknown]
  - Headache [Recovered/Resolved]
  - Initial insomnia [Recovered/Resolved]
